FAERS Safety Report 5832689-4 (Version None)
Quarter: 2008Q3

REPORT INFORMATION
  Report Type: 
  Country: None (occurrence: None)
  Receive Date: 20080804
  Receipt Date: 20080723
  Transmission Date: 20090109
  Serious: Yes (Life-Threatening, Hospitalization, Other)
  Sender: FDA-Public Use
  Company Number: US-PFIZER INC-2008011772

PATIENT
  Sex: Female

DRUGS (7)
  1. DILANTIN SUSPENSION [Suspect]
     Indication: CONVULSION
     Dosage: FREQ:DAILY: EVERY DAY
  2. DILANTIN KAPSEALS [Suspect]
  3. PHENYTOIN [Suspect]
  4. TEGRETOL [Suspect]
     Indication: CONVULSION
  5. VALIUM [Concomitant]
     Indication: CONVULSION
  6. VITAMIN TAB [Concomitant]
  7. ALL OTHER THERAPEUTIC PRODUCTS [Concomitant]

REACTIONS (15)
  - ABNORMAL BEHAVIOUR [None]
  - ANOREXIA [None]
  - ANTICONVULSANT DRUG LEVEL DECREASED [None]
  - ANTICONVULSANT DRUG LEVEL INCREASED [None]
  - BRAIN OPERATION [None]
  - CONVULSION [None]
  - DRUG INEFFECTIVE [None]
  - FATIGUE [None]
  - GASTRIC DISORDER [None]
  - MALAISE [None]
  - OVERDOSE [None]
  - STOMACH DISCOMFORT [None]
  - SURGERY [None]
  - WEIGHT DECREASED [None]
  - WITHDRAWAL SYNDROME [None]
